FAERS Safety Report 7351033-7 (Version None)
Quarter: 2011Q1

REPORT INFORMATION
  Report Type: 
  Country: None (occurrence: None)
  Receive Date: 20110314
  Receipt Date: 20110310
  Transmission Date: 20110831
  Serious: Yes (Death)
  Sender: FDA-Public Use
  Company Number: US-ASTRAZENECA-2011SE11343

PATIENT
  Sex: Female

DRUGS (7)
  1. ZAROXOLYN [Concomitant]
  2. SINGULAIR [Concomitant]
  3. NEXIUM [Suspect]
     Route: 048
  4. PROVENTIL [Concomitant]
  5. LASIX [Concomitant]
  6. SYMBICORT [Suspect]
     Indication: CHRONIC OBSTRUCTIVE PULMONARY DISEASE
     Dosage: 160/4.5 UG 1 PUFF BID
     Route: 055
     Dates: start: 20090519
  7. COUMADIN [Concomitant]

REACTIONS (1)
  - CARDIAC FAILURE CONGESTIVE [None]
